FAERS Safety Report 14186964 (Version 6)
Quarter: 2018Q3

REPORT INFORMATION
  Report Type: Spontaneous
  Country: US (occurrence: US)
  Receive Date: 20171114
  Receipt Date: 20180830
  Transmission Date: 20181010
  Serious: Yes (Other)
  Sender: FDA-Public Use
  Company Number: US-PFIZER INC-2017478182

PATIENT
  Age: 26 Year
  Sex: Female
  Weight: 55 kg

DRUGS (22)
  1. GENOTROPIN [Suspect]
     Active Substance: SOMATROPIN
     Indication: GROWTH HORMONE DEFICIENCY
     Dosage: 2.6 MG, 3 TIMES PER WEEK
     Route: 058
     Dates: start: 20161206, end: 20180205
  2. VALACYCLOVIR HCL [Concomitant]
     Active Substance: VALACYCLOVIR HYDROCHLORIDE
     Indication: BONE MARROW TRANSPLANT
     Dosage: 0.5 G, 2X/DAY(HALF A TABLET ORALLY EVERY 12 HRS)
     Route: 048
  3. VALACYCLOVIR HCL [Concomitant]
     Active Substance: VALACYCLOVIR HYDROCHLORIDE
     Dosage: 500 MG, 2X/DAY
  4. MG?PLUS?PROTEIN [Concomitant]
     Dosage: 133 MG, 2X/DAY
     Route: 048
  5. CYPROHEPTADINE HCL [Concomitant]
     Active Substance: CYPROHEPTADINE HYDROCHLORIDE
     Dosage: 4 MG, 2X/DAY
     Route: 048
  6. PREDNISONE. [Concomitant]
     Active Substance: PREDNISONE
     Indication: GRAFT VERSUS HOST DISEASE
     Dosage: 10 MG, ALTERNATE DAY
     Route: 048
  7. PROVERA [Concomitant]
     Active Substance: MEDROXYPROGESTERONE ACETATE
     Dosage: 10 MG, UNK (1 TABLET ORALLY ONCE A DAY?10 DAYS OUT OF EACH MONTH)
     Route: 048
  8. SULFAMETHOXAZOLE AND TRIMETHOPRIM [Concomitant]
     Active Substance: SULFAMETHOXAZOLE\TRIMETHOPRIM
     Dosage: UNK (SULFAMETHOXAZOLE: 800 MG AND TRIMETHOPRIM : 160 MG, 1 TABLET ORALLY TWICE A DAY ON SATURDAY AND
     Route: 048
  9. CYCLOBENZAPRINE. [Concomitant]
     Active Substance: CYCLOBENZAPRINE
     Dosage: UNK
  10. FAMOTIDINE. [Concomitant]
     Active Substance: FAMOTIDINE
     Dosage: UNK
  11. TACROLIMUS. [Concomitant]
     Active Substance: TACROLIMUS
     Dosage: 0.5 MG, 2X/DAY
  12. LEVAQUIN [Concomitant]
     Active Substance: LEVOFLOXACIN
     Indication: PROPHYLAXIS
     Dosage: 0.5 G, DAILY
  13. PREMARIN [Concomitant]
     Active Substance: ESTROGENS, CONJUGATED
     Dosage: 1.25 MG, UNK (ONCE A DAY FOR 28 DAYS OUT OF THE MONTH)
     Route: 048
  14. JAKAFI [Concomitant]
     Active Substance: RUXOLITINIB
     Dosage: 5 MG, UNK (1 TABLET ORALLY TWICE A DAY?4/7)
     Route: 048
  15. GENOTROPIN [Suspect]
     Active Substance: SOMATROPIN
     Indication: ACUTE MYELOID LEUKAEMIA
     Dosage: UNK
  16. GENOTROPIN [Suspect]
     Active Substance: SOMATROPIN
     Indication: BONE MARROW TRANSPLANT
     Dosage: 2.6 MG, 3 TIMES FOR WEEK
     Route: 058
     Dates: start: 201702, end: 20180217
  17. GENOTROPIN [Suspect]
     Active Substance: SOMATROPIN
     Indication: GRAFT VERSUS HOST DISEASE
     Dosage: 7.8 MG, WEEKLY (2.6 MG/DAY X 3 TIMES A WEEK)
     Route: 058
     Dates: start: 20170302
  18. AMOXICILLIN. [Concomitant]
     Active Substance: AMOXICILLIN
     Dosage: UNK
  19. BACTRIM [Concomitant]
     Active Substance: SULFAMETHOXAZOLE\TRIMETHOPRIM
     Dosage: UNK
  20. ESCITALOPRAM [Concomitant]
     Active Substance: ESCITALOPRAM OXALATE
     Dosage: UNK
  21. TACROLIMUS. [Concomitant]
     Active Substance: TACROLIMUS
     Indication: GRAFT VERSUS HOST DISEASE
     Dosage: 2.5 MG, 2X/DAY (4/6)
     Route: 048
  22. LEXAPRO [Concomitant]
     Active Substance: ESCITALOPRAM OXALATE
     Dosage: 10 MG, 1X/DAY
     Route: 048

REACTIONS (25)
  - Monocyte count increased [Unknown]
  - Red blood cell count decreased [Unknown]
  - Lymphocyte count decreased [Unknown]
  - Red cell distribution width increased [Unknown]
  - Neutrophil count increased [Unknown]
  - Reticulocyte count increased [Unknown]
  - Haematocrit decreased [Unknown]
  - Somnolence [Unknown]
  - Dyskinesia [Unknown]
  - Alanine aminotransferase increased [Unknown]
  - Aspartate aminotransferase increased [Unknown]
  - Condition aggravated [Not Recovered/Not Resolved]
  - Dysphagia [Recovering/Resolving]
  - Haemoglobin decreased [Unknown]
  - Trismus [Not Recovered/Not Resolved]
  - Blood albumin decreased [Unknown]
  - Joint stiffness [Unknown]
  - Metamyelocyte count increased [Unknown]
  - Eosinophil count decreased [Unknown]
  - Blood beta-D-glucan abnormal [Unknown]
  - Speech disorder [Recovering/Resolving]
  - Blood magnesium increased [Unknown]
  - Blood alkaline phosphatase increased [Unknown]
  - Tongue biting [Unknown]
  - Myelocyte count increased [Unknown]

NARRATIVE: CASE EVENT DATE: 2018
